FAERS Safety Report 10476579 (Version 13)
Quarter: 2015Q2

REPORT INFORMATION
  Report Type: Report from Study
  Country: FR (occurrence: FR)
  Receive Date: 20140925
  Receipt Date: 20150609
  Transmission Date: 20150821
  Serious: Yes (Other)
  Sender: FDA-Public Use
  Company Number: FR-CELGENE-056-21880-14072516

PATIENT
  Age: 45 Year
  Sex: Male

DRUGS (2)
  1. REVLIMID [Suspect]
     Active Substance: LENALIDOMIDE
     Indication: LYMPHOMA
     Dosage: 10 MILLIGRAM
     Route: 048
     Dates: start: 20130129, end: 20140611
  2. RITUXIMAB [Suspect]
     Active Substance: RITUXIMAB
     Indication: LYMPHOMA
     Route: 041
     Dates: start: 20130128

REACTIONS (1)
  - Pregnancy of partner [Recovered/Resolved]

NARRATIVE: CASE EVENT DATE: 20140717
